FAERS Safety Report 4553176-X (Version None)
Quarter: 2005Q1

REPORT INFORMATION
  Report Type: 
  Country: None (occurrence: None)
  Receive Date: 20050112
  Receipt Date: 20041221
  Transmission Date: 20050727
  Serious: Yes (Disabling, Other)
  Sender: FDA-Public Use
  Company Number: USA041286807

PATIENT
  Age: 60 Year
  Sex: Male

DRUGS (2)
  1. VANCOMYCIN-IV (VANCOMYCIN) (VANCOMYCIN HYDROCHLORIDE) [Suspect]
     Indication: STAPHYLOCOCCAL INFECTION
  2. DAPTOMYCIN [Concomitant]

REACTIONS (5)
  - ALOPECIA [None]
  - BALANCE DISORDER [None]
  - DANDRUFF [None]
  - DEAFNESS [None]
  - RED MAN SYNDROME [None]
